FAERS Safety Report 14482037 (Version 2)
Quarter: 2018Q1

REPORT INFORMATION
  Report Type: Report from Study
  Country: US (occurrence: US)
  Receive Date: 20180202
  Receipt Date: 20180319
  Transmission Date: 20180509
  Serious: Yes (Hospitalization, Disabling)
  Sender: FDA-Public Use
  Company Number: PHEH2018US003708

PATIENT
  Age: 69 Year
  Sex: Male

DRUGS (1)
  1. COSENTYX [Suspect]
     Active Substance: SECUKINUMAB
     Indication: PSORIASIS
     Dosage: 300 MG, QW
     Route: 058
     Dates: start: 20171212

REACTIONS (5)
  - Arteriosclerosis [Unknown]
  - Right hemisphere deficit syndrome [Unknown]
  - Cerebrovascular accident [Unknown]
  - Embolic stroke [Unknown]
  - Hemiparesis [Unknown]

NARRATIVE: CASE EVENT DATE: 201712
